FAERS Safety Report 5143321-X (Version None)
Quarter: 2006Q4

REPORT INFORMATION
  Report Type: 
  Country: None (occurrence: None)
  Receive Date: 20061103
  Receipt Date: 20061024
  Transmission Date: 20070319
  Serious: Yes (Other)
  Sender: FDA-Public Use
  Company Number: US-ROCHE-468456

PATIENT
  Age: 34 Year
  Sex: Female

DRUGS (8)
  1. MYCOPHENOLATE MOFETIL [Suspect]
     Route: 065
  2. MYCOPHENOLATE MOFETIL [Suspect]
     Route: 065
  3. TACROLIMUS [Suspect]
     Route: 065
  4. PREDNISONE TAB [Suspect]
     Route: 065
  5. PREDNISONE TAB [Suspect]
     Route: 065
  6. FLUCONAZOLE [Concomitant]
  7. 5-FC [Concomitant]
  8. 1 CONCOMITANT DRUG [Concomitant]
     Dosage: REPORTED AS LAMB

REACTIONS (7)
  - BLOOD CREATININE INCREASED [None]
  - CRYPTOCOCCOSIS [None]
  - CSF CULTURE POSITIVE [None]
  - DEPRESSED LEVEL OF CONSCIOUSNESS [None]
  - IMMUNE RECONSTITUTION SYNDROME [None]
  - LUNG CONSOLIDATION [None]
  - LUNG NEOPLASM [None]
